FAERS Safety Report 9383388 (Version 1)
Quarter: 2013Q3

REPORT INFORMATION
  Report Type: Spontaneous
  Country: US (occurrence: US)
  Receive Date: 20130704
  Receipt Date: 20130704
  Transmission Date: 20140515
  Serious: Yes (Hospitalization)
  Sender: FDA-Public Use
  Company Number: US-MERCK-1307USA000892

PATIENT
  Age: 80 Year
  Sex: Male

DRUGS (4)
  1. ZETIA [Suspect]
     Indication: BLOOD CHOLESTEROL INCREASED
     Dosage: 10 MG, QD
     Route: 048
     Dates: end: 20130617
  2. PLAVIX [Concomitant]
     Dosage: 25 MG, QD
  3. ATENOLOL [Concomitant]
     Dosage: 25 MG, QD
  4. LORAZEPAM [Concomitant]
     Dosage: 25 MG, QD

REACTIONS (2)
  - Neck injury [Recovering/Resolving]
  - Balance disorder [Recovering/Resolving]
